FAERS Safety Report 10540864 (Version 2)
Quarter: 2014Q4

REPORT INFORMATION
  Report Type: Spontaneous
  Country: NL (occurrence: None)
  Receive Date: 20141022
  Receipt Date: 20141113
  Transmission Date: 20150529
  Serious: Yes (Other)
  Sender: FDA-Public Use
  Company Number: 2014-20549

PATIENT
  Age: 77 Year
  Sex: Female

DRUGS (1)
  1. EYLEA [Suspect]
     Active Substance: AFLIBERCEPT
     Indication: PRODUCT USED FOR UNKNOWN INDICATION
     Dates: start: 20140922, end: 20140922

REACTIONS (4)
  - Drug effect decreased [None]
  - Retinal oedema [None]
  - Visual acuity reduced [None]
  - Detachment of retinal pigment epithelium [None]

NARRATIVE: CASE EVENT DATE: 201308
